FAERS Safety Report 4409437-8 (Version None)
Quarter: 2004Q3

REPORT INFORMATION
  Report Type: 
  Country: None (occurrence: None)
  Receive Date: 20040722
  Receipt Date: 20040628
  Transmission Date: 20050211
  Serious: Yes (Death)
  Sender: FDA-Public Use
  Company Number: 20040600330

PATIENT
  Age: 56 Year
  Sex: Female

DRUGS (1)
  1. LIDOCAINE W/ EPINEPHRINE [Suspect]
     Indication: ANAESTHESIA
     Dates: start: 20040216, end: 20040216

REACTIONS (3)
  - CARDIAC ARREST [None]
  - PROCEDURAL COMPLICATION [None]
  - TACHYCARDIA [None]
